FAERS Safety Report 4624041-4 (Version None)
Quarter: 2005Q1

REPORT INFORMATION
  Report Type: 
  Country: None (occurrence: None)
  Receive Date: 20050331
  Receipt Date: 20040719
  Transmission Date: 20050727
  Serious: Yes (Death, Other)
  Sender: FDA-Public Use
  Company Number: PHFR2004GB02829

PATIENT
  Age: 52 Year
  Sex: Female

DRUGS (7)
  1. LORAZEPAM [Concomitant]
     Indication: ANXIETY
     Dosage: UP TO 1 MG TID
     Route: 048
  2. HALOPERIDOL [Concomitant]
     Indication: ANXIETY
     Dosage: UP TO 5MG/DAY
     Route: 048
  3. CITALOPRAM HYDROBROMIDE [Concomitant]
     Indication: ANXIETY
     Dosage: 20MG/DAY
     Route: 048
  4. CLONAZEPAM [Concomitant]
     Indication: ANXIETY
     Dosage: UP TO 2 MG BID
     Route: 048
  5. TEMAZEPAM [Concomitant]
     Dosage: 10MG/NOCTE
     Route: 065
  6. PROCYCLIDINE HYDROCHLORIDE 2MG TAB [Concomitant]
     Dosage: 2.5 MG, TID
     Route: 065
  7. CARBAMAZEPINE [Suspect]
     Indication: BIPOLAR DISORDER
     Dosage: 300 MG, BID
     Route: 048
     Dates: start: 19970101, end: 20030101

REACTIONS (6)
  - ALVEOLITIS [None]
  - CORONARY ARTERY ATHEROSCLEROSIS [None]
  - DIFFUSE ALVEOLAR DAMAGE [None]
  - HYPONATRAEMIA [None]
  - LOWER RESPIRATORY TRACT INFECTION [None]
  - RESPIRATORY DISORDER [None]
